FAERS Safety Report 12637590 (Version 1)
Quarter: 2016Q3

REPORT INFORMATION
  Report Type: Spontaneous
  Country: US (occurrence: US)
  Receive Date: 20160809
  Receipt Date: 20160809
  Transmission Date: 20161109
  Serious: No
  Sender: FDA-Public Use
  Company Number: US-ABBVIE-16P-163-1688334-00

PATIENT
  Sex: Female

DRUGS (4)
  1. BUTALBITAL [Suspect]
     Active Substance: BUTALBITAL
     Indication: NAUSEA
     Route: 065
  2. AMITRIPTYLINE [Suspect]
     Active Substance: AMITRIPTYLINE
     Indication: PRODUCT USED FOR UNKNOWN INDICATION
     Route: 065
  3. DEPAKOTE [Suspect]
     Active Substance: DIVALPROEX SODIUM
     Indication: PRODUCT USED FOR UNKNOWN INDICATION
     Route: 065
  4. BOTOX [Suspect]
     Active Substance: ONABOTULINUMTOXINA
     Indication: HEADACHE
     Route: 065

REACTIONS (4)
  - Visual impairment [Unknown]
  - Tension headache [Unknown]
  - Migraine [Unknown]
  - Nausea [Unknown]
